FAERS Safety Report 9143659 (Version 5)
Quarter: 2013Q4

REPORT INFORMATION
  Report Type: Spontaneous
  Country: FR (occurrence: FR)
  Receive Date: 20130306
  Receipt Date: 20131209
  Transmission Date: 20140711
  Serious: Yes (Hospitalization, Other)
  Sender: FDA-Public Use
  Company Number: FR-ROCHE-1198327

PATIENT
  Age: 22 Year
  Sex: Female
  Weight: 50 kg

DRUGS (9)
  1. ZELBORAF [Suspect]
     Indication: METASTATIC MALIGNANT MELANOMA
     Route: 048
     Dates: start: 20130215
  2. ZELBORAF [Suspect]
     Route: 048
  3. OXYCONTIN [Concomitant]
     Indication: PAIN
     Route: 048
     Dates: start: 20130212
  4. OXYCONTIN [Concomitant]
     Route: 048
     Dates: start: 20130315
  5. OXYNORM [Concomitant]
     Indication: PAIN
     Route: 048
     Dates: start: 20130212
  6. OXYNORM [Concomitant]
     Route: 048
     Dates: start: 20130315
  7. PROFENID [Concomitant]
     Indication: PAIN
     Route: 048
     Dates: start: 20130212
  8. ACUPAN [Concomitant]
     Indication: PAIN
     Route: 048
     Dates: start: 20130212
  9. PERFALGAN [Concomitant]
     Indication: PAIN
     Route: 048
     Dates: start: 20130212

REACTIONS (1)
  - Myocarditis [Recovering/Resolving]
